FAERS Safety Report 23844380 (Version 1)
Quarter: 2024Q2

REPORT INFORMATION
  Report Type: Spontaneous
  Country: CA (occurrence: CA)
  Receive Date: 20240510
  Receipt Date: 20240510
  Transmission Date: 20240715
  Serious: Yes (Other)
  Sender: FDA-Public Use
  Company Number: CA-TEVA-VS-3197024

PATIENT
  Sex: Male

DRUGS (1)
  1. LIOTHYRONINE SODIUM [Suspect]
     Active Substance: LIOTHYRONINE SODIUM
     Indication: Product used for unknown indication
     Route: 065

REACTIONS (8)
  - Fatigue [Unknown]
  - Feeling hot [Unknown]
  - Hyperthyroidism [Unknown]
  - Insomnia [Unknown]
  - Rash [Unknown]
  - Tinnitus [Unknown]
  - Blood thyroid stimulating hormone increased [Unknown]
  - Blood pressure decreased [Unknown]
